FAERS Safety Report 8431795-8 (Version None)
Quarter: 2012Q2

REPORT INFORMATION
  Report Type: 
  Country: None (occurrence: None)
  Receive Date: 20120613
  Receipt Date: 20120608
  Transmission Date: 20120825
  Serious: No
  Sender: FDA-Public Use
  Company Number: US-PFIZER INC-2012138692

PATIENT
  Sex: Male
  Weight: 109 kg

DRUGS (1)
  1. NITROSTAT [Suspect]
     Indication: CARDIAC DISORDER
     Dosage: 0.4 MG, AS NEEDED
     Route: 048
     Dates: start: 20040101

REACTIONS (1)
  - MALAISE [None]
